FAERS Safety Report 20397814 (Version 2)
Quarter: 2022Q1

REPORT INFORMATION
  Report Type: Spontaneous
  Country: US (occurrence: US)
  Receive Date: 20220131
  Receipt Date: 20220201
  Transmission Date: 20220424
  Serious: No
  Sender: FDA-Public Use
  Company Number: US-ABBVIE-21K-163-3806605-00

PATIENT
  Age: 63 Year
  Sex: Male

DRUGS (1)
  1. HUMIRA [Suspect]
     Active Substance: ADALIMUMAB
     Indication: Psoriatic arthropathy
     Route: 058

REACTIONS (14)
  - SARS-CoV-2 test positive [Unknown]
  - Suspected COVID-19 [Unknown]
  - Anosmia [Unknown]
  - Ageusia [Unknown]
  - Blood potassium decreased [Recovering/Resolving]
  - Gastrooesophageal reflux disease [Unknown]
  - Oropharyngeal pain [Unknown]
  - Dyspnoea [Unknown]
  - Rash [Unknown]
  - Pain [Unknown]
  - Headache [Unknown]
  - Ear pain [Unknown]
  - Unevaluable event [Unknown]
  - Heart rate increased [Unknown]

NARRATIVE: CASE EVENT DATE: 20200701
